FAERS Safety Report 5057148-0 (Version None)
Quarter: 2006Q2

REPORT INFORMATION
  Report Type: 
  Country: None (occurrence: None)
  Receive Date: 20060622
  Receipt Date: 20050915
  Transmission Date: 20061013
  Serious: Yes (Death)
  Sender: FDA-Public Use
  Company Number: US-JNJFOC-20050904017

PATIENT
  Age: 15 Year
  Sex: Male

DRUGS (1)
  1. FENTANYL [Suspect]
     Indication: INTENTIONAL DRUG MISUSE
     Dosage: , 1 IN 1 DAY, TRANSDERMAL
     Route: 062
     Dates: end: 20050912

REACTIONS (1)
  - DRUG ABUSER [None]
